FAERS Safety Report 6729286-5 (Version None)
Quarter: 2010Q2

REPORT INFORMATION
  Report Type: 
  Country: None (occurrence: None)
  Receive Date: 20100517
  Receipt Date: 20100429
  Transmission Date: 20101027
  Serious: No
  Sender: FDA-Public Use
  Company Number: US-ABBOTT-10P-163-0642439-00

PATIENT
  Sex: Male
  Weight: 94.432 kg

DRUGS (4)
  1. SIMCOR [Suspect]
     Indication: BLOOD CHOLESTEROL INCREASED
     Dosage: EVERY NIGHT
     Dates: start: 20100427
  2. PLAVIX [Concomitant]
     Indication: CAROTID ARTERY STENT INSERTION
  3. ASPIRIN [Concomitant]
     Indication: DRUG USE FOR UNKNOWN INDICATION
  4. MICARDIS [Concomitant]
     Indication: HYPERTENSION
     Dosage: 80/12.5 MG DAILY

REACTIONS (1)
  - MUSCLE SPASMS [None]
